FAERS Safety Report 10033679 (Version 1)
Quarter: 2014Q1

REPORT INFORMATION
  Report Type: Spontaneous
  Country: US (occurrence: US)
  Receive Date: 20140325
  Receipt Date: 20140325
  Transmission Date: 20141002
  Serious: No
  Sender: FDA-Public Use
  Company Number: US-BIOGENIDEC-2014BI024062

PATIENT
  Age: 55 Year
  Sex: Female

DRUGS (3)
  1. TECFIDERA [Suspect]
     Indication: MULTIPLE SCLEROSIS
     Route: 048
     Dates: start: 20140307
  2. GABAPENTIN [Concomitant]
  3. LORAZEPAM [Concomitant]

REACTIONS (3)
  - Headache [Unknown]
  - Flushing [Unknown]
  - Pruritus [Unknown]
